FAERS Safety Report 7561059-6 (Version None)
Quarter: 2011Q2

REPORT INFORMATION
  Report Type: 
  Country: None (occurrence: None)
  Receive Date: 20110525
  Receipt Date: 20110317
  Transmission Date: 20111010
  Serious: No
  Sender: FDA-Public Use
  Company Number: 325221

PATIENT
  Age: 64 Year
  Sex: Male
  Weight: 95.2 kg

DRUGS (4)
  1. METFORMIN HCL [Concomitant]
  2. INSULIN (INSULIN) [Concomitant]
  3. VICTOZA [Suspect]
     Indication: WEIGHT DECREASED
     Dosage: 0.6 MG, QD, SUBCUTANEOUS
     Route: 058
     Dates: start: 20100810
  4. VICTOZA [Suspect]
     Indication: TYPE 2 DIABETES MELLITUS
     Dosage: 0.6 MG, QD, SUBCUTANEOUS
     Route: 058
     Dates: start: 20100810

REACTIONS (2)
  - BLOOD GLUCOSE DECREASED [None]
  - MALAISE [None]
